FAERS Safety Report 11004982 (Version 5)
Quarter: 2015Q4

REPORT INFORMATION
  Report Type: Spontaneous
  Country: US (occurrence: US)
  Receive Date: 20150409
  Receipt Date: 20151102
  Transmission Date: 20160304
  Serious: Yes (Hospitalization, Other)
  Sender: FDA-Public Use
  Company Number: US-BAYER-2015-118382

PATIENT
  Age: 36 Year
  Sex: Female
  Weight: 58.96 kg

DRUGS (8)
  1. MIRENA [Suspect]
     Active Substance: LEVONORGESTREL
     Indication: CONTRACEPTION
     Dosage: 20 MCG/24HR, CONT
     Route: 015
     Dates: start: 20100204, end: 20130830
  2. MIRENA [Suspect]
     Active Substance: LEVONORGESTREL
     Indication: CONTRACEPTION
     Dosage: 20 MCG/24HR, CONT
     Route: 015
     Dates: start: 20030227, end: 20100204
  3. PRILOSEC [Concomitant]
     Active Substance: OMEPRAZOLE MAGNESIUM
     Indication: HERNIA
     Dosage: UNK
     Dates: start: 2000
  4. NAPROXEN. [Concomitant]
     Active Substance: NAPROXEN
     Dosage: UNK
     Dates: start: 20130829
  5. PREVACID [Concomitant]
     Active Substance: LANSOPRAZOLE
     Indication: GASTROOESOPHAGEAL REFLUX DISEASE
  6. PRILOSEC [Concomitant]
     Active Substance: OMEPRAZOLE MAGNESIUM
     Indication: GASTROOESOPHAGEAL REFLUX DISEASE
  7. KEFLEX [Concomitant]
     Active Substance: CEPHALEXIN
     Dosage: 500 MG, QID
  8. PREVACID [Concomitant]
     Active Substance: LANSOPRAZOLE
     Indication: HERNIA
     Dosage: UNK
     Dates: start: 2000

REACTIONS (14)
  - Cystitis [None]
  - Abdominal pain [None]
  - Pelvic discomfort [None]
  - Depression [None]
  - Device use error [None]
  - Uterine perforation [None]
  - Pelvic inflammatory disease [None]
  - Kidney infection [None]
  - Device dislocation [None]
  - Cyst [None]
  - Injury [None]
  - Emotional distress [None]
  - Anxiety [None]
  - Device issue [None]

NARRATIVE: CASE EVENT DATE: 20060526
